FAERS Safety Report 4742471-7 (Version None)
Quarter: 2005Q3

REPORT INFORMATION
  Report Type: 
  Country: None (occurrence: None)
  Receive Date: 20050811
  Receipt Date: 20050801
  Transmission Date: 20060218
  Serious: Yes (Hospitalization)
  Sender: FDA-Public Use
  Company Number: HR-BRISTOL-MYERS SQUIBB COMPANY-13057849

PATIENT
  Age: 60 Year
  Sex: Male

DRUGS (5)
  1. MEGOSTAT [Suspect]
     Indication: WEIGHT DECREASED
     Route: 048
     Dates: start: 20050630, end: 20050711
  2. DURAGESIC-100 [Concomitant]
  3. CODEINE PHOSPHATE [Concomitant]
  4. DIAZEPAM [Concomitant]
  5. TRAMADOL HCL [Concomitant]

REACTIONS (1)
  - JAUNDICE [None]
